FAERS Safety Report 22102914 (Version 6)
Quarter: 2025Q2

REPORT INFORMATION
  Report Type: Spontaneous
  Country: US (occurrence: US)
  Receive Date: 20230316
  Receipt Date: 20250620
  Transmission Date: 20250717
  Serious: Yes (Hospitalization, Other)
  Sender: PFIZER
  Company Number: US-PFIZER INC-PV202300048779

PATIENT
  Age: 74 Year
  Sex: Male
  Weight: 60.781 kg

DRUGS (4)
  1. VYNDAMAX [Suspect]
     Active Substance: TAFAMIDIS
     Indication: Acquired ATTR amyloidosis
     Dosage: 61 MG, 1X/DAY
     Route: 048
     Dates: start: 202201, end: 202302
  2. VYNDAMAX [Suspect]
     Active Substance: TAFAMIDIS
     Indication: Amyloidosis
     Dosage: 61 MG, 1X/DAY
     Route: 048
     Dates: start: 202302
  3. ENTRESTO [Concomitant]
     Active Substance: SACUBITRIL\VALSARTAN
     Indication: Heart failure with reduced ejection fraction
     Dosage: 24-26 MG, BID (TWICE A DAY)
  4. METOPROLOL [Concomitant]
     Active Substance: METOPROLOL
     Indication: Heart failure with reduced ejection fraction
     Dosage: 12.5 MG, BID (TWICE A DAY)

REACTIONS (5)
  - Hip fracture [Recovered/Resolved with Sequelae]
  - Peripheral swelling [Recovered/Resolved with Sequelae]
  - Fall [Recovered/Resolved with Sequelae]
  - Infection [Recovered/Resolved with Sequelae]
  - Hip surgery [Unknown]

NARRATIVE: CASE EVENT DATE: 20230201
